FAERS Safety Report 10154176 (Version 1)
Quarter: 2014Q2

REPORT INFORMATION
  Report Type: Spontaneous
  Country: CH (occurrence: None)
  Receive Date: 20140502
  Receipt Date: 20140502
  Transmission Date: 20141212
  Serious: Yes (Other)
  Sender: FDA-Public Use
  Company Number: 2014P1003500

PATIENT
  Age: 68 Year
  Sex: Female

DRUGS (2)
  1. ROPINIROLE [Suspect]
     Indication: PARKINSON^S DISEASE
     Dates: start: 201002, end: 201301
  2. LEVODOPA [Suspect]
     Indication: PARKINSON^S DISEASE
     Dates: end: 201301

REACTIONS (1)
  - Pleurothotonus [None]
